FAERS Safety Report 21391724 (Version 6)
Quarter: 2023Q1

REPORT INFORMATION
  Report Type: Report from Study
  Country: US (occurrence: US)
  Receive Date: 20220929
  Receipt Date: 20230110
  Transmission Date: 20230417
  Serious: No
  Sender: FDA-Public Use
  Company Number: US-NOVARTISTESTPH-NVSC2022US220661

PATIENT
  Sex: Female

DRUGS (2)
  1. TASIGNA [Suspect]
     Active Substance: NILOTINIB
     Indication: Philadelphia positive chronic myeloid leukaemia
     Dosage: 150 MG, OTHER (EVERY 7 HOURS)
     Route: 048
     Dates: start: 20221010
  2. TASIGNA [Suspect]
     Active Substance: NILOTINIB
     Dosage: 300 MG, BID
     Route: 048

REACTIONS (15)
  - Cold sweat [Unknown]
  - Feeling abnormal [Unknown]
  - Red blood cell count decreased [Unknown]
  - White blood cell count decreased [Unknown]
  - Haemoglobin decreased [Unknown]
  - Anaemia [Unknown]
  - Constipation [Recovered/Resolved]
  - Palpitations [Unknown]
  - Aspartate aminotransferase increased [Unknown]
  - Asthenia [Unknown]
  - Insomnia [Unknown]
  - Rash [Unknown]
  - Tremor [Unknown]
  - Dysuria [Unknown]
  - Fatigue [Unknown]
